FAERS Safety Report 9806724 (Version 1)
Quarter: 2014Q1

REPORT INFORMATION
  Report Type: Spontaneous
  Country: US (occurrence: US)
  Receive Date: 20140109
  Receipt Date: 20140109
  Transmission Date: 20141002
  Serious: No
  Sender: FDA-Public Use
  Company Number: US-ENDO PHARMACEUTICALS INC.-FORT20130354

PATIENT
  Age: 49 Year
  Sex: Male

DRUGS (3)
  1. FORTESTA [Suspect]
     Indication: HYPOGONADISM
     Route: 061
     Dates: start: 20130404, end: 20130415
  2. FORTESTA [Suspect]
     Route: 061
     Dates: start: 20130416, end: 201307
  3. FORTESTA [Suspect]
     Route: 061
     Dates: start: 201307

REACTIONS (2)
  - Prescribed overdose [Not Recovered/Not Resolved]
  - Drug ineffective [Not Recovered/Not Resolved]
